FAERS Safety Report 4725791-1 (Version None)
Quarter: 2005Q3

REPORT INFORMATION
  Report Type: 
  Country: None (occurrence: None)
  Receive Date: 20050722
  Receipt Date: 20050722
  Transmission Date: 20060218
  Serious: Yes (Death, Hospitalization)
  Sender: FDA-Public Use
  Company Number: None

PATIENT
  Age: 46 Year
  Sex: Male
  Weight: 72.5755 kg

DRUGS (11)
  1. LEXIVA [Suspect]
     Indication: HIV INFECTION
     Dosage: 700 MG PO BID
     Route: 048
     Dates: start: 20050610
  2. INVIRASE [Suspect]
     Indication: HIV INFECTION
     Dosage: 1000 MG PO BID
     Route: 048
     Dates: start: 20050610
  3. RITONAVIR [Suspect]
     Indication: HIV INFECTION
     Dosage: 100 MG PO BID
     Route: 048
     Dates: start: 20050610
  4. TRUVADA [Suspect]
     Indication: HIV INFECTION
     Dosage: 200 MG/300 MG PO QD
     Route: 048
     Dates: start: 20050610
  5. DURAGESIC-100 [Concomitant]
  6. ANDROGEL [Concomitant]
  7. TRAZODONE HCL [Concomitant]
  8. VALGANCYCLOVIR [Concomitant]
  9. PENTAMIDINE ISETHIONATE [Concomitant]
  10. PROZAC [Concomitant]
  11. ACETIC ACID [Concomitant]

REACTIONS (6)
  - CAROTID ARTERY ATHEROMA [None]
  - CAROTID ARTERY OCCLUSION [None]
  - CEREBRAL INFARCTION [None]
  - CEREBROVASCULAR ACCIDENT [None]
  - CEREBROVASCULAR DISORDER [None]
  - CONVULSION [None]
